FAERS Safety Report 5274495-8 (Version None)
Quarter: 2007Q1

REPORT INFORMATION
  Report Type: 
  Country: None (occurrence: None)
  Receive Date: 20070323
  Receipt Date: 20070313
  Transmission Date: 20070707
  Serious: Yes (Other)
  Sender: FDA-Public Use
  Company Number: US-PFIZER INC-2007019787

PATIENT
  Sex: Male
  Weight: 77.1 kg

DRUGS (3)
  1. CHANTIX [Suspect]
     Indication: EX-SMOKER
     Dosage: FREQ:DAILY
     Route: 048
     Dates: start: 20070303, end: 20070312
  2. LEXAPRO [Concomitant]
  3. GEODON [Concomitant]

REACTIONS (2)
  - AGITATION [None]
  - SUICIDAL IDEATION [None]
